FAERS Safety Report 8953110 (Version 1)
Quarter: 2012Q4

REPORT INFORMATION
  Report Type: 
  Country: US (occurrence: US)
  Receive Date: 20121205
  Receipt Date: 20121205
  Transmission Date: 20130627
  Serious: Yes (Other)
  Sender: FDA-Public Use
  Company Number: US-JNJFOC-20121115109

PATIENT
  Sex: Female
  Weight: 97.98 kg

DRUGS (6)
  1. XARELTO [Suspect]
     Indication: CEREBROVASCULAR ACCIDENT PROPHYLAXIS
     Route: 048
     Dates: start: 201204
  2. XARELTO [Suspect]
     Indication: ATRIAL FIBRILLATION
     Route: 048
     Dates: start: 201204
  3. SPIRIVA [Concomitant]
  4. SYMBICORT [Concomitant]
     Indication: RESPIRATORY DISORDER
  5. DIURETIC [Concomitant]
     Indication: FLUID RETENTION
     Dates: start: 2006
  6. DILTIAZEM [Concomitant]
     Indication: CARDIAC DISORDER
     Dates: start: 201204

REACTIONS (1)
  - Hernia [Not Recovered/Not Resolved]
